FAERS Safety Report 6162574-2 (Version None)
Quarter: 2009Q2

REPORT INFORMATION
  Report Type: 
  Country: None (occurrence: None)
  Receive Date: 20090421
  Receipt Date: 20080201
  Transmission Date: 20091009
  Serious: No
  Sender: FDA-Public Use
  Company Number: US-ASTRAZENECA-2004UW15379

PATIENT
  Age: 80 Year
  Sex: Male
  Weight: 59 kg

DRUGS (9)
  1. CRESTOR [Suspect]
     Indication: BLOOD CHOLESTEROL INCREASED
     Dosage: 1/2 TABLET DAILY
     Route: 048
  2. CRESTOR [Suspect]
     Route: 048
  3. DIGOXIN [Concomitant]
  4. AXID [Concomitant]
  5. PLAVIX [Concomitant]
  6. ALTACE [Concomitant]
  7. MULTI-VITAMINS [Concomitant]
  8. CALCIUM CITRATE [Concomitant]
  9. FISH OIL [Concomitant]

REACTIONS (2)
  - ANORECTAL DISORDER [None]
  - CONSTIPATION [None]
